FAERS Safety Report 7004070-6 (Version None)
Quarter: 2010Q3

REPORT INFORMATION
  Report Type: 
  Country: None (occurrence: None)
  Receive Date: 20100920
  Receipt Date: 20100112
  Transmission Date: 20110219
  Serious: No
  Sender: FDA-Public Use
  Company Number: US-WYE-H12974210

PATIENT
  Sex: Female

DRUGS (7)
  1. PRISTIQ [Suspect]
     Indication: DEPRESSION
     Route: 048
     Dates: start: 20091229
  2. ACETYLSALICYLIC ACID [Concomitant]
  3. CYMBALTA [Concomitant]
     Dosage: UNKNOWN
     Dates: end: 20100110
  4. PROTONIX [Concomitant]
  5. SINGULAIR [Concomitant]
  6. VYTORIN [Concomitant]
  7. LASIX [Concomitant]

REACTIONS (2)
  - MUSCULOSKELETAL STIFFNESS [None]
  - MYALGIA [None]
